FAERS Safety Report 8418516-X (Version None)
Quarter: 2012Q2

REPORT INFORMATION
  Report Type: 
  Country: None (occurrence: None)
  Receive Date: 20120607
  Receipt Date: 20120524
  Transmission Date: 20120825
  Serious: Yes (Death, Hospitalization)
  Sender: FDA-Public Use
  Company Number: IT-CELGENEUS-083-21880-12041357

PATIENT
  Sex: Male
  Weight: 75 kg

DRUGS (8)
  1. DEXAMETHASONE [Concomitant]
     Indication: MULTIPLE MYELOMA
     Route: 048
     Dates: start: 20110519, end: 20110615
  2. DEXAMETHASONE [Concomitant]
     Route: 048
     Dates: start: 20120302, end: 20120322
  3. REVLIMID [Suspect]
     Indication: MULTIPLE MYELOMA
     Dosage: 25 MILLIGRAM
     Route: 048
     Dates: start: 20110519
  4. ALLOPURINOL [Concomitant]
     Dosage: 300 MILLIGRAM
     Route: 048
  5. LYRICA [Concomitant]
     Dosage: 100 MILLIGRAM
     Route: 048
  6. OMEPRAZOLE [Concomitant]
     Dosage: 20 MILLIGRAM
     Route: 065
  7. REVLIMID [Suspect]
     Dosage: 25 MILLIGRAM
     Route: 048
     Dates: start: 20120302, end: 20120322
  8. DEXAMETHASONE [Concomitant]
     Route: 065

REACTIONS (2)
  - PULMONARY OEDEMA [None]
  - PANCYTOPENIA [None]
